FAERS Safety Report 5719124-1 (Version None)
Quarter: 2008Q2

REPORT INFORMATION
  Report Type: 
  Country: None (occurrence: None)
  Receive Date: 20080428
  Receipt Date: 20080416
  Transmission Date: 20081010
  Serious: Yes (Life-Threatening)
  Sender: FDA-Public Use
  Company Number: FR-NOVOPROD-273856

PATIENT
  Age: 9 Year
  Sex: Female
  Weight: 33 kg

DRUGS (4)
  1. NORDITROPIN SIMPLEXX [Suspect]
     Indication: HYPOPITUITARISM
     Dosage: .79 MG, QD
     Dates: start: 19991018, end: 20060127
  2. NORDITROPIN SIMPLEXX [Suspect]
     Dosage: 0.5 MG QD
     Dates: start: 20061001
  3. LEVOTHYROXINE SODIUM [Concomitant]
     Dates: start: 19991018
  4. HYDROCORTISONE [Concomitant]
     Dates: start: 19991018

REACTIONS (1)
  - ASTROCYTOMA [None]
